FAERS Safety Report 14013792 (Version 1)
Quarter: 2017Q3

REPORT INFORMATION
  Report Type: Spontaneous
  Country: US (occurrence: US)
  Receive Date: 20170926
  Receipt Date: 20170926
  Transmission Date: 20171128
  Serious: Yes (Hospitalization, Other)
  Sender: FDA-Public Use
  Company Number: US-NOVOPROD-564445

PATIENT
  Age: 45 Year
  Sex: Male
  Weight: 86.62 kg

DRUGS (1)
  1. VICTOZA [Suspect]
     Active Substance: LIRAGLUTIDE
     Indication: TYPE 2 DIABETES MELLITUS
     Dosage: 1.8 MG, QD
     Route: 058
     Dates: start: 201604, end: 201707

REACTIONS (12)
  - Epilepsy [Not Recovered/Not Resolved]
  - Head injury [Recovered/Resolved]
  - Concussion [Recovered/Resolved]
  - Cell death [Recovered/Resolved]
  - Urticaria [Recovered/Resolved]
  - Blood potassium increased [Recovered/Resolved]
  - Fluid retention [Recovered/Resolved]
  - Somnambulism [Recovered/Resolved]
  - Fall [Recovered/Resolved]
  - Eye movement disorder [Not Recovered/Not Resolved]
  - Neurotransmitter level altered [Recovered/Resolved]
  - Product quality issue [Recovered/Resolved]

NARRATIVE: CASE EVENT DATE: 201604
